FAERS Safety Report 6013233-8 (Version None)
Quarter: 2008Q4

REPORT INFORMATION
  Report Type: 
  Country: None (occurrence: None)
  Receive Date: 20081219
  Receipt Date: 20081215
  Transmission Date: 20090506
  Serious: Yes (Hospitalization)
  Sender: FDA-Public Use
  Company Number: FR-WYE-H07238708

PATIENT
  Sex: Male

DRUGS (5)
  1. INIPOMP [Suspect]
     Route: 048
     Dates: start: 20081027
  2. AOTAL [Suspect]
     Dosage: UNSPECIFIED DAILY DOSE
     Dates: end: 20081108
  3. SPECIAFOLDINE [Suspect]
     Route: 048
     Dates: start: 20081027, end: 20081108
  4. LOVENOX [Suspect]
     Dosage: 0.4 ML DAILY
     Route: 058
     Dates: start: 20081027, end: 20081108
  5. TOPALGIC [Suspect]
     Route: 048
     Dates: start: 20081030, end: 20081110

REACTIONS (2)
  - PURPURA [None]
  - VASCULITIS [None]
